FAERS Safety Report 18420069 (Version 1)
Quarter: 2020Q4

REPORT INFORMATION
  Report Type: Spontaneous
  Country: US (occurrence: US)
  Receive Date: 20201023
  Receipt Date: 20201023
  Transmission Date: 20210114
  Serious: No
  Sender: FDA-Public Use
  Company Number: US-BIOGEN-2020BI00937188

PATIENT
  Sex: Female

DRUGS (1)
  1. TECFIDERA [Suspect]
     Active Substance: DIMETHYL FUMARATE
     Indication: MULTIPLE SCLEROSIS
     Route: 065
     Dates: start: 20160921, end: 20170816

REACTIONS (6)
  - Anxiety [Unknown]
  - Fall [Recovered/Resolved]
  - Gastric disorder [Unknown]
  - Fear [Unknown]
  - Stress [Unknown]
  - Balance disorder [Unknown]
